FAERS Safety Report 19241437 (Version 1)
Quarter: 2021Q2

REPORT INFORMATION
  Report Type: Spontaneous
  Country: US (occurrence: US)
  Receive Date: 20210510
  Receipt Date: 20210510
  Transmission Date: 20210717
  Serious: Yes (Disabling)
  Sender: FDA-Public Use
  Company Number: None

PATIENT
  Age: 20 Year
  Sex: Female
  Weight: 47.25 kg

DRUGS (1)
  1. APETAMIN CYPROHEPTADINE LYSINE AND VITAMIN SYRUP [Suspect]
     Active Substance: CYPROHEPTADINE HYDROCHLORIDE\LYSINE HYDROCHLORIDE\VITAMINS
     Indication: WEIGHT INCREASED
     Dosage: ?          QUANTITY:10 ML;?
     Route: 060
     Dates: start: 20210506, end: 20210506

REACTIONS (4)
  - Memory impairment [None]
  - Headache [None]
  - Tremor [None]
  - Seizure [None]

NARRATIVE: CASE EVENT DATE: 20210506
